FAERS Safety Report 5215011-6 (Version None)
Quarter: 2007Q1

REPORT INFORMATION
  Report Type: 
  Country: None (occurrence: None)
  Receive Date: 20070122
  Receipt Date: 20070110
  Transmission Date: 20070707
  Serious: Yes (Other)
  Sender: FDA-Public Use
  Company Number: US-PFIZER INC-2006098752

PATIENT
  Sex: Male
  Weight: 68 kg

DRUGS (6)
  1. DILANTIN [Suspect]
     Indication: CONVULSION
     Route: 065
  2. MOTRIN [Suspect]
     Indication: PAIN
     Route: 065
  3. ROBAXIN [Suspect]
     Indication: PAIN
     Route: 065
  4. SKELAXIN [Suspect]
     Indication: PAIN
     Route: 065
  5. VICODIN [Suspect]
     Indication: PAIN
     Dosage: TEXT:UNKNOWN-FREQ:UNKNOWN
     Route: 065
  6. LIPITOR [Concomitant]

REACTIONS (12)
  - ADVERSE DRUG REACTION [None]
  - ANTICONVULSANT DRUG LEVEL BELOW THERAPEUTIC [None]
  - BLOOD CHOLESTEROL INCREASED [None]
  - BODY HEIGHT DECREASED [None]
  - CONVULSION [None]
  - CORONARY ARTERY BYPASS [None]
  - DIARRHOEA [None]
  - GASTRITIS EROSIVE [None]
  - LUMBAR SPINE FLATTENING [None]
  - MUSCLE INJURY [None]
  - PAIN [None]
  - ROAD TRAFFIC ACCIDENT [None]
